FAERS Safety Report 5157472-7 (Version None)
Quarter: 2006Q4

REPORT INFORMATION
  Report Type: 
  Country: None (occurrence: None)
  Receive Date: 20061127
  Receipt Date: 20050922
  Transmission Date: 20070319
  Serious: Yes (Life-Threatening, Disabling)
  Sender: FDA-Public Use
  Company Number: 200513137FR

PATIENT
  Age: 82 Year
  Sex: Male
  Weight: 65 kg

DRUGS (6)
  1. KETEK [Suspect]
     Indication: BRONCHITIS
     Route: 048
     Dates: start: 20050210, end: 20050210
  2. RHINOFLUIMUCIL                     /00851901/ [Concomitant]
     Indication: BRONCHITIS
     Dates: start: 20050210
  3. ASPEGIC                            /00002703/ [Concomitant]
     Indication: BRONCHITIS
     Dates: start: 20050210
  4. MESTINON [Concomitant]
     Indication: MUSCULAR WEAKNESS
     Route: 048
  5. VASTAREL [Concomitant]
  6. CLAMOXYL                           /00249601/ [Concomitant]
     Indication: BRONCHITIS
     Dates: end: 20050201

REACTIONS (11)
  - BRONCHOSPASM [None]
  - COMA [None]
  - FATIGUE [None]
  - HEPATOCELLULAR DAMAGE [None]
  - HYPOTONIA [None]
  - LOSS OF CONSCIOUSNESS [None]
  - MYASTHENIA GRAVIS [None]
  - OXYGEN SATURATION DECREASED [None]
  - PNEUMONIA ASPIRATION [None]
  - RESPIRATORY FAILURE [None]
  - RESPIRATORY PARALYSIS [None]
